FAERS Safety Report 4810007-8 (Version None)
Quarter: 2005Q4

REPORT INFORMATION
  Report Type: 
  Country: None (occurrence: None)
  Receive Date: 20051026
  Receipt Date: 20051014
  Transmission Date: 20060501
  Serious: Yes (Other)
  Sender: FDA-Public Use
  Company Number: PHBS2005CA15586

PATIENT
  Age: 25 Year
  Sex: Female

DRUGS (3)
  1. LAMISIL [Suspect]
     Route: 048
     Dates: start: 20050901
  2. ELIDEL [Suspect]
     Indication: ECZEMA
     Dosage: UNK, PRN
     Route: 061
  3. ORAL CONTRACEPTIVE NOS [Concomitant]

REACTIONS (2)
  - BLISTER [None]
  - STEVENS-JOHNSON SYNDROME [None]
